FAERS Safety Report 6954873-9 (Version None)
Quarter: 2010Q3

REPORT INFORMATION
  Report Type: 
  Country: None (occurrence: None)
  Receive Date: 20100830
  Receipt Date: 20100729
  Transmission Date: 20110219
  Serious: No
  Sender: FDA-Public Use
  Company Number: US-BAYER-201019035BCC

PATIENT
  Age: 35 Year
  Sex: Female
  Weight: 52 kg

DRUGS (5)
  1. MIDOL EXTENDED RELIEF CAPLETS [Suspect]
     Indication: DYSMENORRHOEA
     Route: 048
  2. MIDOL LIQUID GELS [Suspect]
     Indication: DYSMENORRHOEA
     Route: 048
  3. MIDOL MENSTRUAL COMPLETE CAPLETS [Suspect]
     Indication: DYSMENORRHOEA
  4. MIDOL PM CAPLETS [Suspect]
     Indication: DYSMENORRHOEA
     Route: 048
  5. MIDOL TEEN FORMULA [Suspect]
     Indication: DYSMENORRHOEA
     Route: 048

REACTIONS (1)
  - DYSMENORRHOEA [None]
